FAERS Safety Report 19309729 (Version 1)
Quarter: 2021Q2

REPORT INFORMATION
  Report Type: Spontaneous
  Country: US (occurrence: US)
  Receive Date: 20210526
  Receipt Date: 20210526
  Transmission Date: 20210717
  Serious: No
  Sender: FDA-Public Use
  Company Number: US-ELI_LILLY_AND_COMPANY-US202105008665

PATIENT
  Sex: Female

DRUGS (3)
  1. BASAGLAR [Suspect]
     Active Substance: INSULIN GLARGINE
     Dosage: 56 U, DAILY BEDTIME
     Route: 065
  2. LYUMJEV [INSULIN LISPRO] [Concomitant]
     Indication: TYPE 1 DIABETES MELLITUS
  3. BASAGLAR [Suspect]
     Active Substance: INSULIN GLARGINE
     Indication: TYPE 1 DIABETES MELLITUS
     Dosage: 56 U, DAILY BEDTIME
     Route: 065
     Dates: start: 201911

REACTIONS (1)
  - Therapeutic product effect variable [Unknown]
